FAERS Safety Report 6449330-2 (Version None)
Quarter: 2009Q4

REPORT INFORMATION
  Report Type: 
  Country: None (occurrence: None)
  Receive Date: 20091120
  Receipt Date: 20091109
  Transmission Date: 20100525
  Serious: Yes (Other)
  Sender: FDA-Public Use
  Company Number: HR-ELI_LILLY_AND_COMPANY-HR200911002001

PATIENT
  Sex: Female

DRUGS (5)
  1. FORTEO [Suspect]
     Indication: OSTEOPOROTIC FRACTURE
     Dosage: 20 UG, UNKNOWN
     Route: 058
     Dates: start: 20091015, end: 20090101
  2. GLUCOBAY [Concomitant]
     Dosage: UNK, UNKNOWN
     Route: 065
  3. GLUCOPHAGE [Concomitant]
     Dosage: UNK, UNKNOWN
     Route: 065
  4. NOZINAN [Concomitant]
     Dosage: UNK, UNKNOWN
     Route: 065
  5. PRAXITEN [Concomitant]
     Dosage: UNK, UNKNOWN
     Route: 065

REACTIONS (2)
  - PAIN IN EXTREMITY [None]
  - SUFFOCATION FEELING [None]
